FAERS Safety Report 8395288-9 (Version None)
Quarter: 2012Q1

REPORT INFORMATION
  Report Type: 
  Country: None (occurrence: None)
  Receive Date: 20120323
  Receipt Date: 20110314
  Transmission Date: 20120608
  Serious: Yes (Hospitalization)
  Sender: FDA-Public Use
  Company Number: 163-21880-11031899

PATIENT
  Age: 69 Year
  Sex: Female

DRUGS (9)
  1. REVLIMID [Suspect]
     Indication: MULTIPLE MYELOMA
     Dosage: 15 MG, DAILY, PO ; 15 MG, 1 IN 1 D, PO ; 20 MG, 2 IN 1 D, PO
     Route: 048
     Dates: start: 20060801, end: 20080101
  2. REVLIMID [Suspect]
     Indication: MULTIPLE MYELOMA
     Dosage: 15 MG, DAILY, PO ; 15 MG, 1 IN 1 D, PO ; 20 MG, 2 IN 1 D, PO
     Route: 048
     Dates: start: 20080901
  3. REVLIMID [Suspect]
     Indication: MULTIPLE MYELOMA
     Dosage: 15 MG, DAILY, PO ; 15 MG, 1 IN 1 D, PO ; 20 MG, 2 IN 1 D, PO
     Route: 048
     Dates: start: 20110101
  4. DEXAMETHASONE [Concomitant]
  5. PENTAMIDINE ISETHIONATE [Concomitant]
  6. IMMUNE GLOBULIN NOS [Concomitant]
  7. LISINOPRIL [Concomitant]
  8. ACYCLOVIR [Concomitant]
  9. INSULIN R (INSULIN) [Concomitant]

REACTIONS (1)
  - DISEASE PROGRESSION [None]
